FAERS Safety Report 4289262-1 (Version None)
Quarter: 2004Q1

REPORT INFORMATION
  Report Type: 
  Country: None (occurrence: None)
  Receive Date: 20040205
  Receipt Date: 20040128
  Transmission Date: 20041129
  Serious: Yes (Hospitalization)
  Sender: FDA-Public Use
  Company Number: K200400110

PATIENT
  Age: 63 Year
  Sex: Female

DRUGS (2)
  1. SEPTRA [Suspect]
     Indication: INFECTION
     Dosage: 20/100 MG/KG/DAY, INTRAVENOUS
     Route: 042
  2. CEFTRIAXONE [Concomitant]

REACTIONS (3)
  - ASTERIXIS [None]
  - MYOCLONUS [None]
  - TREMOR [None]
